FAERS Safety Report 11717671 (Version 1)
Quarter: 2015Q4

REPORT INFORMATION
  Report Type: Spontaneous
  Country: US (occurrence: US)
  Receive Date: 20151110
  Receipt Date: 20151110
  Transmission Date: 20160304
  Serious: Yes (Hospitalization)
  Sender: FDA-Public Use
  Company Number: US-TEVA-556245USA

PATIENT
  Sex: Male

DRUGS (2)
  1. OLANZAPINE. [Suspect]
     Active Substance: OLANZAPINE
     Indication: SCHIZOPHRENIA
     Dates: start: 20150318
  2. OLANZAPINE. [Suspect]
     Active Substance: OLANZAPINE
     Dates: start: 20150321

REACTIONS (2)
  - Treatment noncompliance [Unknown]
  - Hospitalisation [Unknown]
